FAERS Safety Report 24637823 (Version 1)
Quarter: 2024Q4

REPORT INFORMATION
  Report Type: Spontaneous
  Country: US (occurrence: None)
  Receive Date: 20241118
  Receipt Date: 20241118
  Transmission Date: 20250115
  Serious: Yes (Death)
  Sender: Public
  Company Number: None

PATIENT
  Age: 21 Year
  Sex: Female
  Weight: 74.84 kg

DRUGS (3)
  1. HUMALOG [Suspect]
     Active Substance: INSULIN LISPRO
  2. Dexcom [Concomitant]
  3. Omnipod 5 [Concomitant]

REACTIONS (2)
  - Generalised tonic-clonic seizure [None]
  - Device malfunction [None]

NARRATIVE: CASE EVENT DATE: 20240712
